FAERS Safety Report 13415320 (Version 1)
Quarter: 2017Q2

REPORT INFORMATION
  Report Type: Spontaneous
  Country: US (occurrence: US)
  Receive Date: 20170406
  Receipt Date: 20170406
  Transmission Date: 20170830
  Serious: Yes (Other)
  Sender: FDA-Public Use
  Company Number: US-PFIZER INC-2017143571

PATIENT
  Age: 77 Year
  Sex: Male

DRUGS (2)
  1. DOXYCYCLINE HYCLATE. [Suspect]
     Active Substance: DOXYCYCLINE HYCLATE
     Indication: MYCOBACTERIAL INFECTION
     Dosage: 100 MG, 2X/DAY
     Route: 048
  2. SEPTRA [Suspect]
     Active Substance: SULFAMETHOXAZOLE\TRIMETHOPRIM
     Indication: MYCOBACTERIAL INFECTION
     Dosage: ONE DOUBLE STRENGTH, TWICE DAILY
     Route: 048

REACTIONS (2)
  - Renal impairment [Unknown]
  - Pathogen resistance [Unknown]
